FAERS Safety Report 16288692 (Version 1)
Quarter: 2019Q2

REPORT INFORMATION
  Report Type: Spontaneous
  Country: US (occurrence: US)
  Receive Date: 20190509
  Receipt Date: 20190509
  Transmission Date: 20190711
  Serious: No
  Sender: FDA-Public Use
  Company Number: US-SHIRE-US201915090

PATIENT
  Age: 36 Year
  Sex: Female
  Weight: 63.49 kg

DRUGS (2)
  1. XIIDRA [Suspect]
     Active Substance: LIFITEGRAST
     Indication: DRY EYE
     Dosage: 1 DOSAGE FORM, 2X/DAY:BID
     Route: 047
     Dates: start: 20190412
  2. LOSARTAN. [Concomitant]
     Active Substance: LOSARTAN
     Indication: HYPERTENSION

REACTIONS (3)
  - Taste disorder [Not Recovered/Not Resolved]
  - Throat tightness [Not Recovered/Not Resolved]
  - Instillation site pain [Unknown]

NARRATIVE: CASE EVENT DATE: 201904
